FAERS Safety Report 12555061 (Version 1)
Quarter: 2016Q3

REPORT INFORMATION
  Report Type: Spontaneous
  Country: US (occurrence: US)
  Receive Date: 20160714
  Receipt Date: 20160714
  Transmission Date: 20161109
  Serious: Yes (Other)
  Sender: FDA-Public Use
  Company Number: US-CIPLA-2014US00222

PATIENT

DRUGS (5)
  1. TEMOZOLOMIDE. [Suspect]
     Active Substance: TEMOZOLOMIDE
     Indication: RHABDOMYOSARCOMA
     Dosage: 150 MG/M2, (DAYS 1 TO 5 IN 3 WEEK)
     Route: 065
  2. IRINOTECAN [Suspect]
     Active Substance: IRINOTECAN
     Indication: RHABDOMYOSARCOMA
     Dosage: 90 MG/M2, ON DAYS 1-5 IN 3 WEEKS
     Route: 048
  3. CEFIXIME. [Concomitant]
     Active Substance: CEFIXIME
     Indication: PROPHYLAXIS
     Dosage: 8 MG/KG, QD, ADMINISTERED FOR 10 DAYS STARTING 2 DAYS BEFORE EACH CHEMOTHERAPY CYCLE.
     Route: 065
  4. BEVACIZUMAB [Suspect]
     Active Substance: BEVACIZUMAB
     Indication: RHABDOMYOSARCOMA
     Dosage: 15 MG/M2 ADMINISTERED OVER 90 MINUTES ON DAY 1.
     Route: 065
  5. VINCRISTINE [Suspect]
     Active Substance: VINCRISTINE
     Indication: RHABDOMYOSARCOMA
     Dosage: 1.5 MG/M2, ON DAY 1
     Route: 042

REACTIONS (2)
  - Disease progression [Unknown]
  - Neutropenia [Unknown]
